FAERS Safety Report 11213812 (Version 1)
Quarter: 2015Q2

REPORT INFORMATION
  Report Type: Spontaneous
  Country: US (occurrence: US)
  Receive Date: 20150623
  Receipt Date: 20150623
  Transmission Date: 20150821
  Serious: Yes (Other)
  Sender: FDA-Public Use
  Company Number: US-MYLANLABS-2015M1015473

PATIENT
  Weight: 102 kg

DRUGS (7)
  1. FISH OIL [Concomitant]
     Active Substance: FISH OIL
     Dosage: 2000 MG, QD
  2. ASPIRIN EC [Concomitant]
     Active Substance: ASPIRIN
     Dosage: 81 MG, QD
  3. METHOTREXATE [Suspect]
     Active Substance: METHOTREXATE
     Indication: PSORIATIC ARTHROPATHY
     Dosage: ALTERNATING 5MG ONE WEEK THEN 7.5MG THE NEXT WEEK
     Dates: start: 1993, end: 2012
  4. GLUCOSAMINE + CHONDROITIN          /01430901/ [Concomitant]
     Dosage: 4000 MG, QD
  5. SAW PALMETTO                       /00833501/ [Concomitant]
     Active Substance: SAW PALMETTO
     Dosage: 400 MG, QD
  6. METHOTREXATE [Suspect]
     Active Substance: METHOTREXATE
     Indication: ARTHRALGIA
     Dosage: 10 MG, QW (2 ON TUESDAY AND 2 ON FRIDAY)
     Route: 048
     Dates: start: 1992, end: 201205
  7. CLINORIL [Concomitant]
     Active Substance: SULINDAC
     Indication: PSORIATIC ARTHROPATHY
     Dosage: 200 MG, QD
     Dates: end: 2013

REACTIONS (1)
  - Anaemia [Recovered/Resolved]

NARRATIVE: CASE EVENT DATE: 2012
